FAERS Safety Report 5645745-0 (Version None)
Quarter: 2008Q1

REPORT INFORMATION
  Report Type: 
  Country: None (occurrence: None)
  Receive Date: 20080229
  Receipt Date: 20080207
  Transmission Date: 20080703
  Serious: Yes (Death)
  Sender: FDA-Public Use
  Company Number: DE-BAYER-200813265GPV

PATIENT

DRUGS (4)
  1. CAMPATH [Suspect]
     Indication: T-CELL DEPLETION
     Route: 065
  2. CYCLOPHOSPHAMIDE [Concomitant]
     Indication: TRANSPLANT
     Route: 042
  3. ETOPOSIDE [Concomitant]
     Indication: TRANSPLANT
     Route: 042
  4. BUSULFAN [Concomitant]
     Indication: TRANSPLANT
     Route: 048

REACTIONS (3)
  - INFECTION [None]
  - TRANSPLANT FAILURE [None]
  - VENOOCCLUSIVE DISEASE [None]
